FAERS Safety Report 9760308 (Version 1)
Quarter: 2013Q4

REPORT INFORMATION
  Report Type: Spontaneous
  Country: US (occurrence: US)
  Receive Date: 20131216
  Receipt Date: 20131216
  Transmission Date: 20140711
  Serious: No
  Sender: FDA-Public Use
  Company Number: US-GILEAD-2010-0029226

PATIENT
  Sex: Female
  Weight: 81.19 kg

DRUGS (25)
  1. LETAIRIS [Suspect]
     Indication: PULMONARY ARTERIAL HYPERTENSION
     Route: 048
     Dates: start: 20080130
  2. ALLEGRA [Concomitant]
  3. PREDNISONE [Concomitant]
  4. MEPHYTON [Concomitant]
  5. VITAMIN D [Concomitant]
  6. REPLIVA [Concomitant]
  7. CEFUROXIME [Concomitant]
  8. CLINDAMYCIN HCL [Concomitant]
  9. HYDROCODONE W/APAP [Concomitant]
  10. ISOSORBIDE MN [Concomitant]
  11. FLUOXETINE [Concomitant]
  12. OXYGEN [Concomitant]
  13. LASIX [Concomitant]
  14. COUMADIN [Concomitant]
  15. LIPITOR [Concomitant]
  16. SYNTHROID [Concomitant]
  17. STARLIX [Concomitant]
  18. FOLIC ACID [Concomitant]
  19. METFORMIN [Concomitant]
  20. ALBUTEROL [Concomitant]
  21. HYDRALAZINE [Concomitant]
  22. PRILOSEC [Concomitant]
  23. SPIRONOLACTONE [Concomitant]
  24. TYLENOL [Concomitant]
  25. POTASSIUM CHLORIDE [Concomitant]

REACTIONS (1)
  - Laryngitis [Unknown]
